FAERS Safety Report 5477697-0 (Version None)
Quarter: 2007Q4

REPORT INFORMATION
  Report Type: 
  Country: None (occurrence: None)
  Receive Date: 20071003
  Receipt Date: 20071003
  Transmission Date: 20080405
  Serious: No
  Sender: FDA-Public Use
  Company Number: None

PATIENT
  Age: 52 Year
  Sex: Female
  Weight: 79.3795 kg

DRUGS (1)
  1. LEVAQUIN [Suspect]
     Indication: KIDNEY INFECTION
     Dosage: QD  PO
     Route: 048
     Dates: start: 20070611, end: 20070620

REACTIONS (6)
  - ARTHRALGIA [None]
  - BACK PAIN [None]
  - MUSCLE STRAIN [None]
  - MUSCULOSKELETAL PAIN [None]
  - PAIN IN EXTREMITY [None]
  - ROTATOR CUFF SYNDROME [None]
